FAERS Safety Report 9556843 (Version 1)
Quarter: 2013Q3

REPORT INFORMATION
  Report Type: Spontaneous
  Country: US (occurrence: None)
  Receive Date: 20130726
  Receipt Date: 20130726
  Transmission Date: 20140515
  Serious: Yes (Hospitalization)
  Sender: FDA-Public Use
  Company Number: UTC-019147

PATIENT
  Age: 46 Year
  Sex: Female
  Weight: 113.6 kg

DRUGS (4)
  1. REMODULIN [Suspect]
     Dosage: 20.16 UG/KG (0.014 UG/KG, 1 IN 1 MIN) , SUBCUTANEOUS
     Route: 058
  2. REVATO (SILDENAFIL CITRATE) [Concomitant]
  3. DIURETICS (DIURETICS) [Concomitant]
  4. FLEXERIL (CYCLOBENZAPRINE HYDROCHLORIDE) [Concomitant]

REACTIONS (1)
  - Infusion site cellulitis [None]
